FAERS Safety Report 4736149-3 (Version None)
Quarter: 2005Q3

REPORT INFORMATION
  Report Type: 
  Country: None (occurrence: None)
  Receive Date: 20050728
  Receipt Date: 20050617
  Transmission Date: 20060218
  Serious: No
  Sender: FDA-Public Use
  Company Number: 200515400US

PATIENT
  Sex: Male

DRUGS (2)
  1. KETEK [Suspect]
     Dates: start: 20050101, end: 20050101
  2. MEDROL [Concomitant]

REACTIONS (1)
  - URTICARIA [None]
